FAERS Safety Report 7793807 (Version 5)
Quarter: 2013Q4

REPORT INFORMATION
  Report Type: Spontaneous
  Country: GB (occurrence: None)
  Receive Date: 20110111
  Receipt Date: 20131115
  Transmission Date: 20140711
  Serious: Yes (Hospitalization)
  Sender: FDA-Public Use
  Company Number: 2010177136

PATIENT
  Age: 55 Year
  Sex: Female

DRUGS (8)
  1. DALTEPARIN SODIUM [Suspect]
     Indication: LUNG NEOPLASM MALIGNANT
     Dosage: 50 IU, 1X/DAY  SUBCUTANEOUS
     Route: 058
     Dates: start: 20101123
  2. ATORVASTATIN (ATORVASTATIN) [Concomitant]
  3. METFORMIN HYDROCHLORIDE [Concomitant]
  4. OMEPRAZOLE [Concomitant]
  5. INSULIN GLARGINE (INSULINE GLARGINE) [Concomitant]
  6. INSULIN ASPART (INSULIN ASPART) [Concomitant]
  7. ORAMORPH SR SUSTAINED RELEASE [Concomitant]
  8. CITALOPRAM [Concomitant]

REACTIONS (13)
  - Diarrhoea [None]
  - Vomiting [None]
  - Burning sensation [None]
  - Hypothermia [None]
  - Tachycardia [None]
  - Pallor [None]
  - Haemoglobin decreased [None]
  - Platelet count decreased [None]
  - Haematocrit decreased [None]
  - Neutropenic sepsis [None]
  - Urinary tract infection [None]
  - Pneumonia [None]
  - Cholecystitis [None]
